FAERS Safety Report 7869540-7 (Version None)
Quarter: 2011Q4

REPORT INFORMATION
  Report Type: 
  Country: None (occurrence: None)
  Receive Date: 20111028
  Receipt Date: 20110105
  Transmission Date: 20120403
  Serious: Yes (Hospitalization)
  Sender: FDA-Public Use
  Company Number: US-AMGEN-USASP2011000769

PATIENT
  Age: 77 Year
  Sex: Female

DRUGS (2)
  1. BONIVA [Concomitant]
  2. ENBREL [Suspect]
     Indication: RHEUMATOID ARTHRITIS
     Dosage: 50 MG, QWK

REACTIONS (1)
  - LOWER RESPIRATORY TRACT INFECTION FUNGAL [None]
